FAERS Safety Report 5807802-5 (Version None)
Quarter: 2008Q3

REPORT INFORMATION
  Report Type: 
  Country: None (occurrence: None)
  Receive Date: 20080711
  Receipt Date: 20080709
  Transmission Date: 20090109
  Serious: No
  Sender: FDA-Public Use
  Company Number: US-BOEHRINGER INGELHEIM GMBH, GERMANY-2008-BP-09665BP

PATIENT
  Sex: Male

DRUGS (4)
  1. VIRAMUNE [Suspect]
     Dates: end: 20080310
  2. GENERIC XANAX [Concomitant]
  3. LIPITOR [Concomitant]
  4. COMBIVIR [Concomitant]

REACTIONS (2)
  - PRURITUS [None]
  - RASH MACULO-PAPULAR [None]
